FAERS Safety Report 17284736 (Version 1)
Quarter: 2020Q1

REPORT INFORMATION
  Report Type: Spontaneous
  Country: GR (occurrence: GR)
  Receive Date: 20200117
  Receipt Date: 20200117
  Transmission Date: 20200409
  Serious: Yes (Other)
  Sender: FDA-Public Use
  Company Number: GR-MYLANLABS-2020M1004596

PATIENT
  Age: 24 Year
  Sex: Male

DRUGS (1)
  1. LEVETIRACETAM. [Suspect]
     Active Substance: LEVETIRACETAM
     Indication: MULTIPLE SCLEROSIS
     Dosage: 1 G, BID
     Route: 065

REACTIONS (4)
  - Product use in unapproved indication [Unknown]
  - Multiple sclerosis relapse [Recovering/Resolving]
  - Biopsy spinal cord [Recovering/Resolving]
  - Central nervous system lesion [Recovering/Resolving]
